FAERS Safety Report 9162847 (Version 1)
Quarter: 2013Q1

REPORT INFORMATION
  Report Type: Spontaneous
  Country: DE (occurrence: DE)
  Receive Date: 20130314
  Receipt Date: 20130314
  Transmission Date: 20140127
  Serious: Yes (Hospitalization, Other)
  Sender: FDA-Public Use
  Company Number: PHHY2013DE024233

PATIENT
  Age: 62 Year
  Sex: Male

DRUGS (4)
  1. BASILIXIMAB [Suspect]
     Indication: RENAL TRANSPLANT
     Dosage: 20 MG, UNK
     Route: 048
     Dates: start: 20121014
  2. MYCOPHENOLATE MOFETIL [Suspect]
     Indication: RENAL TRANSPLANT
     Dosage: 1000 MG, BID
     Route: 048
     Dates: start: 20121014
  3. PREDNISOLONE [Suspect]
     Indication: RENAL TRANSPLANT
     Dosage: 30 MG, QD
     Route: 048
     Dates: start: 20121015
  4. TACROLIMUS [Suspect]
     Indication: RENAL TRANSPLANT
     Dosage: 8 MG, BID
     Route: 048
     Dates: start: 20121014

REACTIONS (6)
  - Anastomotic stenosis [Unknown]
  - Human polyomavirus infection [Not Recovered/Not Resolved]
  - Polyomavirus-associated nephropathy [Unknown]
  - Blood creatinine increased [Unknown]
  - Type 1 diabetes mellitus [Unknown]
  - Kidney transplant rejection [Recovered/Resolved]
